FAERS Safety Report 9707120 (Version 1)
Quarter: 2013Q4

REPORT INFORMATION
  Report Type: Spontaneous
  Country: US (occurrence: US)
  Receive Date: 20131125
  Receipt Date: 20131125
  Transmission Date: 20140711
  Serious: No
  Sender: FDA-Public Use
  Company Number: US-BAYER-2013-143102

PATIENT
  Age: 72 Year
  Sex: Female
  Weight: 109 kg

DRUGS (3)
  1. ALEVE TABLET [Suspect]
     Indication: MYALGIA
     Dosage: 1 DF, BID
     Route: 048
     Dates: end: 20131120
  2. ALEVE CAPLET [Suspect]
     Dosage: 1 DF, BID
     Route: 048
     Dates: end: 20131120
  3. BAYER ASPIRIN REGIMEN ADULT LOW STRENGTH [Concomitant]
     Indication: ISCHAEMIC HEART DISEASE PROPHYLAXIS
     Dosage: 1 DF, QD
     Route: 048

REACTIONS (1)
  - Incorrect drug administration duration [None]
